FAERS Safety Report 4474728-1 (Version None)
Quarter: 2004Q3

REPORT INFORMATION
  Report Type: 
  Country: None (occurrence: None)
  Receive Date: 20040923
  Receipt Date: 20040630
  Transmission Date: 20050211
  Serious: No
  Sender: FDA-Public Use
  Company Number: USA040771592

PATIENT
  Sex: Female

DRUGS (2)
  1. FORTEO [Suspect]
     Indication: BONE DENSITY DECREASED
     Dosage: 20 UG DAY
     Dates: start: 20040619
  2. FIBERCON (POLYCARBOPHIL CALCIUM) [Concomitant]

REACTIONS (7)
  - ABDOMINAL PAIN LOWER [None]
  - CONSTIPATION [None]
  - CONTUSION [None]
  - HYPOAESTHESIA [None]
  - INJECTION SITE HAEMORRHAGE [None]
  - JOINT INJURY [None]
  - STOMACH DISCOMFORT [None]
